FAERS Safety Report 5050257-1 (Version None)
Quarter: 2006Q3

REPORT INFORMATION
  Report Type: 
  Country: None (occurrence: None)
  Receive Date: 20060713
  Receipt Date: 20060711
  Transmission Date: 20061208
  Serious: Yes (Other)
  Sender: FDA-Public Use
  Company Number: US-GLAXOSMITHKLINE-A0611760A

PATIENT
  Sex: Male

DRUGS (1)
  1. CITRUCEL SUGAR-FREE SUSPENSION ORANGE [Suspect]
     Indication: DRUG USE FOR UNKNOWN INDICATION
     Dates: start: 20030101

REACTIONS (1)
  - RECTAL HAEMORRHAGE [None]
